FAERS Safety Report 22198958 (Version 6)
Quarter: 2023Q4

REPORT INFORMATION
  Report Type: Spontaneous
  Country: US (occurrence: US)
  Receive Date: 20230411
  Receipt Date: 20231227
  Transmission Date: 20240110
  Serious: No
  Sender: FDA-Public Use
  Company Number: US-BRISTOL-MYERS SQUIBB COMPANY-2023-051205

PATIENT
  Age: 41 Year
  Sex: Male

DRUGS (2)
  1. SPRYCEL [Suspect]
     Active Substance: DASATINIB
     Indication: Chronic myeloid leukaemia
     Route: 048
     Dates: start: 202302
  2. SPRYCEL [Suspect]
     Active Substance: DASATINIB
     Route: 048
     Dates: start: 202302

REACTIONS (10)
  - Pain [Unknown]
  - Skin disorder [Unknown]
  - Epistaxis [Recovering/Resolving]
  - Contusion [Unknown]
  - Headache [Unknown]
  - Pain in extremity [Unknown]
  - Face oedema [Recovered/Resolved]
  - Periorbital swelling [Unknown]
  - Fluid retention [Unknown]
  - Ocular hyperaemia [Unknown]

NARRATIVE: CASE EVENT DATE: 20231101
